FAERS Safety Report 8570575-X (Version None)
Quarter: 2012Q3

REPORT INFORMATION
  Report Type: 
  Country: None (occurrence: None)
  Receive Date: 20120804
  Receipt Date: 20120731
  Transmission Date: 20120928
  Serious: No
  Sender: FDA-Public Use
  Company Number: US-009507513-2012SP031133

PATIENT

DRUGS (1)
  1. SAPHRIS [Suspect]
     Dosage: 15 MG, UNK
     Route: 060
     Dates: start: 20120530, end: 20120531

REACTIONS (1)
  - DYSTONIA [None]
